FAERS Safety Report 4980448-7 (Version None)
Quarter: 2006Q2

REPORT INFORMATION
  Report Type: 
  Country: None (occurrence: None)
  Receive Date: 20060424
  Receipt Date: 20060228
  Transmission Date: 20061013
  Serious: Yes (Other)
  Sender: FDA-Public Use
  Company Number: DE-GLAXOSMITHKLINE-D0048864A

PATIENT
  Sex: Female

DRUGS (2)
  1. ALBUTEROL [Suspect]
     Route: 065
  2. VIANI [Suspect]
     Route: 055

REACTIONS (3)
  - PNEUMONIA [None]
  - TACHYCARDIA [None]
  - TREMOR [None]
